FAERS Safety Report 20140465 (Version 2)
Quarter: 2022Q3

REPORT INFORMATION
  Report Type: Spontaneous
  Country: CA (occurrence: CA)
  Receive Date: 20211202
  Receipt Date: 20220712
  Transmission Date: 20221027
  Serious: Yes (Other)
  Sender: FDA-Public Use
  Company Number: CA-GLAXOSMITHKLINE-CA2021AMR060393

PATIENT

DRUGS (3)
  1. ZEJULA [Suspect]
     Active Substance: NIRAPARIB
     Indication: Ovarian cancer
     Dosage: 200 MG, QD
     Route: 048
     Dates: start: 20210301, end: 20210305
  2. ZEJULA [Suspect]
     Active Substance: NIRAPARIB
     Indication: Fallopian tube cancer
     Dosage: 200 MG, QD
     Route: 048
     Dates: start: 20210427
  3. ZEJULA [Suspect]
     Active Substance: NIRAPARIB
     Indication: Malignant peritoneal neoplasm
     Dosage: 100 MG, QD
     Route: 048
     Dates: start: 20210508

REACTIONS (12)
  - Breast cancer [Unknown]
  - Insomnia [Unknown]
  - Abdominal pain upper [Unknown]
  - Chills [Unknown]
  - Palpitations [Unknown]
  - Hot flush [Unknown]
  - Dizziness [Unknown]
  - Rash [Unknown]
  - Musculoskeletal chest pain [Unknown]
  - Herpes zoster [Recovering/Resolving]
  - Neuralgia [Not Recovered/Not Resolved]
  - Cytoreductive surgery [Unknown]

NARRATIVE: CASE EVENT DATE: 20210304
